FAERS Safety Report 9378243 (Version 5)
Quarter: 2013Q3

REPORT INFORMATION
  Report Type: Report from Study
  Country: JP (occurrence: JP)
  Receive Date: 20130701
  Receipt Date: 20130930
  Transmission Date: 20140515
  Serious: Yes (Death)
  Sender: FDA-Public Use
  Company Number: JP-PFIZER INC-2013190617

PATIENT
  Age: 51 Year
  Sex: Male
  Weight: 116 kg

DRUGS (7)
  1. AZITHROMYCIN [Suspect]
     Indication: PNEUMONIA
     Dosage: 500 MG DAILY AT 1.0 MG/ML
     Route: 041
     Dates: start: 20121217
  2. PARIET [Concomitant]
     Dosage: UNK
     Route: 048
     Dates: end: 20121222
  3. PREDNISOLONE [Concomitant]
     Dosage: UNK
     Route: 048
     Dates: end: 20121222
  4. SEIBULE [Concomitant]
     Dosage: UNK
     Route: 048
     Dates: end: 20121222
  5. AMARYL [Concomitant]
     Dosage: UNK
     Route: 048
     Dates: end: 20121222
  6. BONALON [Concomitant]
     Dosage: UNK
     Route: 048
     Dates: end: 20121222
  7. ALVESCO [Concomitant]
     Dosage: UNK
     Route: 055
     Dates: end: 20121222

REACTIONS (1)
  - Idiopathic pulmonary fibrosis [Fatal]
